FAERS Safety Report 9795604 (Version 1)
Quarter: 2014Q1

REPORT INFORMATION
  Report Type: Spontaneous
  Country: US (occurrence: US)
  Receive Date: 20140103
  Receipt Date: 20140103
  Transmission Date: 20141002
  Serious: Yes (Hospitalization)
  Sender: FDA-Public Use
  Company Number: US-BAYER-2014-000806

PATIENT
  Age: 38 Year
  Sex: Female
  Weight: 68 kg

DRUGS (6)
  1. YAZ [Suspect]
  2. YASMIN [Suspect]
     Indication: MENORRHAGIA
  3. AMOXICILLIN [Concomitant]
     Dosage: 500 MG, UNK
     Route: 048
  4. ECHINACEA [Concomitant]
     Route: 048
  5. IBUPROFEN [Concomitant]
     Dosage: UNK UNK, PRN
     Route: 048
  6. NORCO [Concomitant]

REACTIONS (2)
  - Deep vein thrombosis [None]
  - Pulmonary embolism [None]
